FAERS Safety Report 16272289 (Version 1)
Quarter: 2019Q2

REPORT INFORMATION
  Report Type: Spontaneous
  Country: US (occurrence: US)
  Receive Date: 20190506
  Receipt Date: 20190506
  Transmission Date: 20190711
  Serious: No
  Sender: FDA-Public Use
  Company Number: US-TEVA-2019-US-1046369

PATIENT

DRUGS (1)
  1. SHORT-TERM METOPROLOL ER 25MG [Suspect]
     Active Substance: METOPROLOL
     Indication: TACHYCARDIA
     Route: 065

REACTIONS (2)
  - Tachycardia [Unknown]
  - Raynaud^s phenomenon [Unknown]
